FAERS Safety Report 18452291 (Version 1)
Quarter: 2020Q4

REPORT INFORMATION
  Report Type: Spontaneous
  Country: US (occurrence: US)
  Receive Date: 20201102
  Receipt Date: 20201102
  Transmission Date: 20210114
  Serious: No
  Sender: FDA-Public Use
  Company Number: US-ACCORD-168572

PATIENT
  Sex: Male

DRUGS (1)
  1. ESCITALOPRAM [Suspect]
     Active Substance: ESCITALOPRAM OXALATE
     Indication: ANXIETY
     Dosage: 10 MG ONCE A DAY
     Dates: start: 20191108

REACTIONS (4)
  - Anxiety [Not Recovered/Not Resolved]
  - Product substitution issue [Unknown]
  - Therapeutic response changed [Unknown]
  - Drug ineffective [Unknown]
